FAERS Safety Report 4931246-1 (Version None)
Quarter: 2006Q1

REPORT INFORMATION
  Report Type: 
  Country: None (occurrence: None)
  Receive Date: 20060302
  Receipt Date: 20051215
  Transmission Date: 20060701
  Serious: Yes (Hospitalization)
  Sender: FDA-Public Use
  Company Number: US-MERCK-0512USA02544

PATIENT
  Age: 57 Year
  Sex: Male
  Weight: 88 kg

DRUGS (4)
  1. VIOXX [Suspect]
     Indication: ARTHRITIS
     Route: 048
     Dates: start: 20040130, end: 20040921
  2. VIOXX [Suspect]
     Indication: PAIN
     Route: 048
     Dates: start: 20040130, end: 20040921
  3. MAGNESIUM OXIDE [Concomitant]
     Indication: PAIN
     Route: 065
     Dates: start: 20040201, end: 20041001
  4. HYDROCODONE BITARTRATE + ACETAMINOPHEN [Concomitant]
     Route: 065
     Dates: start: 20030801, end: 20040101

REACTIONS (5)
  - BACK PAIN [None]
  - FIBROMYALGIA [None]
  - HYPERTENSION [None]
  - INJURY [None]
  - MYOCARDIAL INFARCTION [None]
